FAERS Safety Report 10596014 (Version 4)
Quarter: 2015Q2

REPORT INFORMATION
  Report Type: Spontaneous
  Country: AU (occurrence: AU)
  Receive Date: 20141120
  Receipt Date: 20150504
  Transmission Date: 20150821
  Serious: Yes (Death, Hospitalization)
  Sender: FDA-Public Use
  Company Number: AU-BRISTOL-MYERS SQUIBB COMPANY-21600143

PATIENT
  Age: 72 Year
  Sex: Male

DRUGS (8)
  1. MADOPAR [Concomitant]
     Active Substance: BENSERAZIDE HYDROCHLORIDE\LEVODOPA
     Indication: TREMOR
     Dosage: UNK
     Route: 065
     Dates: start: 2013
  2. RIVAROXABAN [Suspect]
     Active Substance: RIVAROXABAN
     Indication: DEEP VEIN THROMBOSIS
     Dosage: 20 MG, QD
     Route: 065
     Dates: start: 201403, end: 20141112
  3. ENOXAPARIN [Suspect]
     Active Substance: ENOXAPARIN
     Indication: ACUTE MYOCARDIAL INFARCTION
     Dosage: 60 MG, BID
     Route: 065
     Dates: start: 20141112
  4. SIFROL [Concomitant]
     Active Substance: PRAMIPEXOLE
     Indication: TREMOR
     Dosage: 1.5 MG, UNK
     Route: 065
     Dates: start: 2013
  5. EZETROL [Concomitant]
     Active Substance: EZETIMIBE
     Indication: HYPERCHOLESTEROLAEMIA
     Dosage: 10 MG, UNK
     Route: 065
     Dates: start: 2013
  6. YERVOY [Suspect]
     Active Substance: IPILIMUMAB
     Indication: METASTATIC MALIGNANT MELANOMA
     Dosage: 3 MG/KG, UNK
     Route: 042
     Dates: start: 20141022
  7. DITROPAN [Concomitant]
     Active Substance: OXYBUTYNIN CHLORIDE
     Indication: URINARY RETENTION
     Dosage: 2.5 MG, UNK
     Route: 065
     Dates: start: 2013
  8. DOXEPIN [Concomitant]
     Active Substance: DOXEPIN
     Indication: DEPRESSION
     Dosage: 25 MG, UNK
     Route: 065
     Dates: start: 2013

REACTIONS (3)
  - Malignant neoplasm progression [Fatal]
  - Acute myocardial infarction [Unknown]
  - Tumour haemorrhage [Fatal]

NARRATIVE: CASE EVENT DATE: 20141111
